FAERS Safety Report 5700795-0 (Version None)
Quarter: 2008Q2

REPORT INFORMATION
  Report Type: 
  Country: None (occurrence: None)
  Receive Date: 20080409
  Receipt Date: 20080409
  Transmission Date: 20081010
  Serious: Yes (Hospitalization)
  Sender: FDA-Public Use
  Company Number: None

PATIENT
  Age: 87 Year
  Sex: Female
  Weight: 55.7 kg

DRUGS (1)
  1. EVISTA [Suspect]
     Dosage: 60MG DAILY PO
     Route: 048

REACTIONS (2)
  - ANXIETY [None]
  - PULMONARY EMBOLISM [None]
